FAERS Safety Report 4808520-2 (Version None)
Quarter: 2005Q4

REPORT INFORMATION
  Report Type: 
  Country: None (occurrence: None)
  Receive Date: 20051025
  Receipt Date: 20051013
  Transmission Date: 20060501
  Serious: Yes (Other)
  Sender: FDA-Public Use
  Company Number: US-JNJFOC-20051004466

PATIENT
  Sex: Female
  Weight: 73.48 kg

DRUGS (7)
  1. DURAGESIC-100 [Suspect]
     Route: 062
  2. DURAGESIC-100 [Suspect]
     Route: 062
  3. DURAGESIC-100 [Suspect]
     Route: 062
  4. SKELAXIN [Concomitant]
  5. MAGOXIDE [Concomitant]
  6. PERCOCET [Concomitant]
  7. PERCOCET [Concomitant]
     Indication: PAIN
     Dosage: 5 MG OXYCODONE/325 MG ACETAMINOPHEN, AS NEEDED

REACTIONS (5)
  - ANXIETY [None]
  - CARDIAC DISORDER [None]
  - INSOMNIA [None]
  - LOSS OF CONSCIOUSNESS [None]
  - WEIGHT DECREASED [None]
